FAERS Safety Report 9246082 (Version 1)
Quarter: 2013Q2

REPORT INFORMATION
  Report Type: Spontaneous
  Country: US (occurrence: US)
  Receive Date: 20130422
  Receipt Date: 20130422
  Transmission Date: 20140414
  Serious: Yes (Other)
  Sender: FDA-Public Use
  Company Number: US-PFIZER INC-2013124257

PATIENT
  Sex: Female

DRUGS (7)
  1. NEURONTIN [Suspect]
     Indication: NEURALGIA
     Dosage: 900 MG (3 CAPSULES OF 300MG AT A TIME), 3X/DAY
     Route: 048
  2. FLEXERIL [Concomitant]
     Dosage: UNK
  3. OPANA [Concomitant]
     Dosage: UNK
  4. ATIVAN [Concomitant]
     Dosage: UNK
  5. RITALIN [Concomitant]
     Dosage: UNK
  6. EFFEXOR [Concomitant]
     Dosage: UNK
  7. KLONOPIN [Concomitant]
     Dosage: UNK

REACTIONS (1)
  - Back disorder [Unknown]
